FAERS Safety Report 7358747-3 (Version None)
Quarter: 2011Q1

REPORT INFORMATION
  Report Type: 
  Country: None (occurrence: None)
  Receive Date: 20110317
  Receipt Date: 20101124
  Transmission Date: 20110831
  Serious: Yes (Hospitalization)
  Sender: FDA-Public Use
  Company Number: A0897701A

PATIENT
  Age: 58 Year
  Sex: Male

DRUGS (1)
  1. AVANDIA [Suspect]
     Dosage: 4MG TWICE PER DAY
     Route: 048
     Dates: start: 19991201, end: 20060804

REACTIONS (5)
  - CARDIAC FAILURE CONGESTIVE [None]
  - PAIN [None]
  - ARTERIOSCLEROSIS [None]
  - DYSPNOEA [None]
  - HYPOGLYCAEMIA [None]
